FAERS Safety Report 26120210 (Version 1)
Quarter: 2025Q4

REPORT INFORMATION
  Report Type: Spontaneous
  Country: US (occurrence: US)
  Receive Date: 20251204
  Receipt Date: 20251204
  Transmission Date: 20260117
  Serious: No
  Sender: TAKEDA
  Company Number: US-TAKEDA-US201814811

PATIENT
  Sex: Female
  Weight: 63.492 kg

DRUGS (2)
  1. KALBITOR [Suspect]
     Active Substance: ECALLANTIDE
     Indication: Immune system disorder
     Dosage: 30 MILLIGRAM, PRN
  2. KALBITOR [Suspect]
     Active Substance: ECALLANTIDE
     Dosage: 30 GRAM, PRN

REACTIONS (2)
  - Pain [Unknown]
  - Hereditary angioedema [Unknown]
